FAERS Safety Report 9855614 (Version 1)
Quarter: 2014Q1

REPORT INFORMATION
  Report Type: Spontaneous
  Country: US (occurrence: None)
  Receive Date: 20140128
  Receipt Date: 20140128
  Transmission Date: 20141002
  Serious: Yes (Death, Hospitalization, Other)
  Sender: FDA-Public Use
  Company Number: CO-KP-US-2014-003

PATIENT
  Age: 6 Year
  Sex: Male

DRUGS (1)
  1. CLONIDINE (CLONIDINE) [Suspect]

REACTIONS (8)
  - Overdose [None]
  - Product compounding quality issue [None]
  - Unresponsive to stimuli [None]
  - Apnoea [None]
  - Bradycardia [None]
  - Hypotension [None]
  - Brain oedema [None]
  - Haemodynamic instability [None]
